FAERS Safety Report 6969539-9 (Version None)
Quarter: 2010Q3

REPORT INFORMATION
  Report Type: 
  Country: None (occurrence: None)
  Receive Date: 20100907
  Receipt Date: 20100907
  Transmission Date: 20110219
  Serious: Yes (Life-Threatening, Hospitalization)
  Sender: FDA-Public Use
  Company Number: None

PATIENT
  Age: 64 Year
  Sex: Female
  Weight: 74.8435 kg

DRUGS (2)
  1. LEVAQUIN [Suspect]
     Indication: BASAL CELL CARCINOMA
     Dosage: 1 TABLET A DAY PO
     Route: 048
     Dates: start: 20100831, end: 20100831
  2. LEVAQUIN [Suspect]
     Indication: INCISION SITE INFECTION
     Dosage: 1 TABLET A DAY PO
     Route: 048
     Dates: start: 20100831, end: 20100831

REACTIONS (14)
  - ASTHENIA [None]
  - BLOOD PRESSURE DECREASED [None]
  - COUGH [None]
  - DIZZINESS [None]
  - DYSPNOEA [None]
  - ERYTHEMA [None]
  - OCULAR HYPERAEMIA [None]
  - PALPITATIONS [None]
  - PANIC REACTION [None]
  - PRURITUS [None]
  - SKIN EXFOLIATION [None]
  - SWELLING FACE [None]
  - THROAT TIGHTNESS [None]
  - TREMOR [None]
